FAERS Safety Report 6897184-2 (Version None)
Quarter: 2010Q3

REPORT INFORMATION
  Report Type: 
  Country: None (occurrence: None)
  Receive Date: 20100802
  Receipt Date: 20070413
  Transmission Date: 20110219
  Serious: Yes (Other)
  Sender: FDA-Public Use
  Company Number: US-PFIZER INC-2007029079

PATIENT
  Sex: Male
  Weight: 83.9 kg

DRUGS (9)
  1. LYRICA [Suspect]
     Indication: NEUROPATHY PERIPHERAL
     Dates: start: 20070301, end: 20070409
  2. NEURONTIN [Suspect]
     Indication: NEUROPATHY PERIPHERAL
  3. ACTOS [Concomitant]
  4. METFORMIN HCL [Concomitant]
  5. HYDRALAZINE HCL [Concomitant]
  6. SULAR [Concomitant]
  7. ATENOLOL [Concomitant]
  8. SERTRALINE HYDROCHLORIDE [Concomitant]
  9. DIGOXIN [Concomitant]

REACTIONS (4)
  - AMNESIA [None]
  - DRUG INEFFECTIVE [None]
  - HALLUCINATION [None]
  - SOMNOLENCE [None]
